FAERS Safety Report 15187543 (Version 2)
Quarter: 2018Q3

REPORT INFORMATION
  Report Type: Report from Study
  Country: CN (occurrence: CN)
  Receive Date: 20180723
  Receipt Date: 20180808
  Transmission Date: 20181010
  Serious: Yes (Other)
  Sender: FDA-Public Use
  Company Number: CN-BAXTER-2018BAX020274

PATIENT

DRUGS (2)
  1. CHLORPROMAZINE. [Suspect]
     Active Substance: CHLORPROMAZINE
     Indication: HEAT STROKE
     Route: 065
  2. 20% MANNITOL INJECTION [Suspect]
     Active Substance: MANNITOL
     Indication: HEAT STROKE
     Route: 065

REACTIONS (1)
  - Renal failure [Recovered/Resolved]
